FAERS Safety Report 25136547 (Version 3)
Quarter: 2025Q2

REPORT INFORMATION
  Report Type: Spontaneous
  Country: CN (occurrence: CN)
  Receive Date: 20250328
  Receipt Date: 20250521
  Transmission Date: 20250717
  Serious: Yes (Death, Hospitalization, Other)
  Sender: PFIZER
  Company Number: CN-PFIZER INC-PV202500036391

PATIENT
  Age: 70 Year
  Sex: Male
  Weight: 70 kg

DRUGS (2)
  1. SUTENT [Suspect]
     Active Substance: SUNITINIB MALATE
     Indication: Neoplasm malignant
     Dosage: 50 MG, 1X/DAY
     Route: 048
     Dates: start: 20250303, end: 20250319
  2. SUTENT [Suspect]
     Active Substance: SUNITINIB MALATE
     Indication: Renal cancer

REACTIONS (16)
  - Renal failure [Fatal]
  - Asthenia [Unknown]
  - Fatigue [Unknown]
  - Chest discomfort [Unknown]
  - Jaundice [Unknown]
  - Nephropathy [Unknown]
  - Hypertension [Unknown]
  - Irritability [Unknown]
  - Thyroid disorder [Unknown]
  - Euthyroid sick syndrome [Unknown]
  - Muscle injury [Unknown]
  - Blood bilirubin unconjugated increased [Unknown]
  - Proteinuria [Unknown]
  - Decreased appetite [Unknown]
  - Dyspnoea [Unknown]
  - Urine abnormality [Unknown]

NARRATIVE: CASE EVENT DATE: 20250301
